FAERS Safety Report 10597214 (Version 1)
Quarter: 2014Q4

REPORT INFORMATION
  Report Type: Spontaneous
  Country: US (occurrence: US)
  Receive Date: 20141121
  Receipt Date: 20141121
  Transmission Date: 20150529
  Serious: No
  Sender: FDA-Public Use
  Company Number: US-TEVA-487825USA

PATIENT
  Sex: Female

DRUGS (1)
  1. CRYSELLE [Suspect]
     Active Substance: ETHINYL ESTRADIOL\NORGESTREL

REACTIONS (6)
  - Adverse event [Unknown]
  - Emotional disorder [Unknown]
  - Weight increased [Unknown]
  - Off label use [Unknown]
  - Dyspnoea [Unknown]
  - Menstrual disorder [Unknown]
